FAERS Safety Report 9659854 (Version 4)
Quarter: 2013Q4

REPORT INFORMATION
  Report Type: Spontaneous
  Country: JP (occurrence: JP)
  Receive Date: 20131031
  Receipt Date: 20131204
  Transmission Date: 20140711
  Serious: Yes (Hospitalization, Other)
  Sender: FDA-Public Use
  Company Number: JP-SA-2013SA110486

PATIENT
  Age: 75 Year
  Sex: Female
  Weight: 39.5 kg

DRUGS (19)
  1. MYSLEE [Suspect]
     Indication: INSOMNIA
     Route: 048
     Dates: start: 20130614, end: 20130907
  2. MYSLEE [Suspect]
     Indication: SUICIDE ATTEMPT
     Route: 048
     Dates: start: 20130614, end: 20130907
  3. MYSLEE [Suspect]
     Indication: INSOMNIA
     Route: 048
  4. MYSLEE [Suspect]
     Indication: SUICIDE ATTEMPT
     Route: 048
  5. MYSLEE [Suspect]
     Indication: INSOMNIA
     Route: 048
     Dates: start: 20130908, end: 20130908
  6. MYSLEE [Suspect]
     Indication: SUICIDE ATTEMPT
     Route: 048
     Dates: start: 20130908, end: 20130908
  7. MYSLEE [Suspect]
     Indication: INSOMNIA
     Route: 048
     Dates: start: 20131004
  8. MYSLEE [Suspect]
     Indication: SUICIDE ATTEMPT
     Route: 048
     Dates: start: 20131004
  9. JUVELA [Concomitant]
     Indication: SPINAL COLUMN STENOSIS
     Dates: start: 20110720, end: 20131004
  10. CELECOX [Concomitant]
     Indication: SPINAL COLUMN STENOSIS
     Dates: start: 20110720, end: 20131004
  11. MUCOSTA [Concomitant]
     Indication: PROPHYLAXIS
     Dates: start: 20110720, end: 20131004
  12. MAGMITT [Concomitant]
     Indication: CONSTIPATION
     Dates: start: 20110720
  13. SEDIEL [Concomitant]
     Indication: ANXIETY DISORDER
     Dates: start: 20130614
  14. E C DOPAL [Concomitant]
     Indication: PROGRESSIVE SUPRANUCLEAR PALSY
     Dates: start: 20130614
  15. SELEGILINE HYDROCHLORIDE [Concomitant]
     Indication: PROGRESSIVE SUPRANUCLEAR PALSY
     Dosage: ORODISPERSIBLE CR TABLET
     Dates: start: 20130614
  16. GASMOTIN [Concomitant]
     Indication: GASTRITIS
     Dates: start: 20130614
  17. CONSTAN [Concomitant]
     Indication: ANXIETY DISORDER
  18. NORVASC [Concomitant]
     Indication: HYPERTENSION
     Dosage: ORODISPERSIBLE CR TABLET
     Dates: start: 20110808
  19. PURSENNID [Concomitant]
     Indication: CONSTIPATION
     Dates: start: 20120226, end: 20131004

REACTIONS (4)
  - Pneumonia aspiration [Recovered/Resolved]
  - Suicide attempt [Recovered/Resolved]
  - Altered state of consciousness [Recovered/Resolved]
  - Intentional overdose [Unknown]
